FAERS Safety Report 5139285-5 (Version None)
Quarter: 2006Q4

REPORT INFORMATION
  Report Type: 
  Country: None (occurrence: None)
  Receive Date: 20061024
  Receipt Date: 20061010
  Transmission Date: 20070319
  Serious: Yes (Other)
  Sender: FDA-Public Use
  Company Number: 2006S1009054

PATIENT
  Age: 63 Year
  Sex: Female

DRUGS (6)
  1. CARBIDOPA AND LEVODOPA [Suspect]
     Indication: PARKINSONISM
     Dosage: 125 MG;QD;PO
     Route: 048
  2. CARBIDOPA AND LEVODOPA [Suspect]
     Dosage: ;PO
     Route: 048
     Dates: start: 20060901, end: 20060920
  3. WELLBUTRIN [Concomitant]
  4. ESCITALOPRAM [Concomitant]
  5. NEFAZODONE HCL [Concomitant]
  6. HYDROCODONE [Concomitant]

REACTIONS (11)
  - AGGRESSION [None]
  - AGITATION [None]
  - ANXIETY [None]
  - BALANCE DISORDER [None]
  - DELUSION [None]
  - DRUG DISPENSING ERROR [None]
  - FEAR [None]
  - MOVEMENT DISORDER [None]
  - MULTIPLE DRUG OVERDOSE [None]
  - PARANOIA [None]
  - THINKING ABNORMAL [None]
